FAERS Safety Report 21365148 (Version 1)
Quarter: 2022Q3

REPORT INFORMATION
  Report Type: Spontaneous
  Country: DE (occurrence: DE)
  Receive Date: 20220922
  Receipt Date: 20220922
  Transmission Date: 20221027
  Serious: Yes (Hospitalization)
  Sender: FDA-Public Use
  Company Number: DE-ROCHE-3152322

PATIENT
  Age: 18 Year
  Sex: Male

DRUGS (5)
  1. MYCOPHENOLATE MOFETIL [Suspect]
     Active Substance: MYCOPHENOLATE MOFETIL
     Indication: Immunosuppression
     Dosage: UNK
     Route: 065
  2. PREDNISOLONE [Concomitant]
     Active Substance: PREDNISOLONE
     Indication: Immunosuppression
     Dosage: 1 MILLIGRAM/KILOGRAM
     Route: 065
  3. PREDNISOLONE [Concomitant]
     Active Substance: PREDNISOLONE
     Indication: Borna virus infection
  4. FAVIPIRAVIR [Concomitant]
     Active Substance: FAVIPIRAVIR
     Indication: Borna virus infection
     Dosage: 600 MILLIGRAM, BID
     Route: 065
  5. FAVIPIRAVIR [Concomitant]
     Active Substance: FAVIPIRAVIR
     Dosage: 1600 MILLIGRAM, BID
     Route: 065

REACTIONS (9)
  - Panic attack [Recovered/Resolved]
  - Social avoidant behaviour [Recovered/Resolved]
  - Aggression [Recovered/Resolved]
  - Dystonia [Recovered/Resolved]
  - Muscle atrophy [Recovered/Resolved]
  - Myoclonus [Recovered/Resolved]
  - Fear [Recovered/Resolved]
  - Psychotic behaviour [Recovered/Resolved]
  - Depressed mood [Recovered/Resolved]
